FAERS Safety Report 13675685 (Version 1)
Quarter: 2017Q2

REPORT INFORMATION
  Report Type: Spontaneous
  Country: DE (occurrence: DE)
  Receive Date: 20170621
  Receipt Date: 20170621
  Transmission Date: 20170830
  Serious: Yes (Other)
  Sender: FDA-Public Use
  Company Number: DE-009507513-1706DEU006226

PATIENT
  Age: 35 Year
  Sex: Female

DRUGS (2)
  1. ISOPTO MAX [Concomitant]
     Dosage: UNK
     Dates: start: 201705, end: 201705
  2. LOTRICOMB [Suspect]
     Active Substance: BETAMETHASONE DIPROPIONATE\CLOTRIMAZOLE
     Indication: ERYTHEMA

REACTIONS (1)
  - Ocular hypertension [Unknown]

NARRATIVE: CASE EVENT DATE: 201706
